FAERS Safety Report 6945134-2 (Version None)
Quarter: 2010Q3

REPORT INFORMATION
  Report Type: 
  Country: None (occurrence: None)
  Receive Date: 20100827
  Receipt Date: 20100819
  Transmission Date: 20110219
  Serious: Yes (Other)
  Sender: FDA-Public Use
  Company Number: CH-AMGEN-QUU433179

PATIENT
  Age: 45 Year
  Sex: Female
  Weight: 50 kg

DRUGS (3)
  1. ENBREL [Suspect]
     Indication: ANKYLOSING SPONDYLITIS
     Dosage: UNKNOWN DOSE (PROBABLY 50 MG) WEEKLY
     Route: 058
     Dates: start: 20060201
  2. DOXYLAMINE [Concomitant]
     Indication: SLEEP DISORDER
     Dosage: UNKNOWN DOSE, DAILY, 'CHRONICALLY'
     Route: 048
  3. OLFEN [Concomitant]
     Dosage: AS NECESSARY
     Route: 048

REACTIONS (3)
  - FATIGUE [None]
  - FOOD INTOLERANCE [None]
  - URTICARIA [None]
